FAERS Safety Report 17983342 (Version 2)
Quarter: 2020Q3

REPORT INFORMATION
  Report Type: Spontaneous
  Country: US (occurrence: US)
  Receive Date: 20200706
  Receipt Date: 20200721
  Transmission Date: 20201103
  Serious: Yes (Hospitalization, Other)
  Sender: FDA-Public Use
  Company Number: US-UPSHER-SMITH LABORATORIES, LLC-2020USL00375

PATIENT
  Age: 68 Year
  Sex: Male
  Weight: 68.03 kg

DRUGS (8)
  1. GLUCOPHAGE [Concomitant]
     Active Substance: METFORMIN HYDROCHLORIDE
  2. KLOR?CON [Suspect]
     Active Substance: POTASSIUM CHLORIDE
     Dosage: 8 MEQ, 1X/DAY
     Route: 048
  3. OXYCODONE (PURDUE PHARMA L.P) [Suspect]
     Active Substance: OXYCODONE
  4. UNSPECIFIED OVER THE COUNTER PRODUCTS [Concomitant]
     Active Substance: UNSPECIFIED INGREDIENT
  5. JANUVIA [Concomitant]
     Active Substance: SITAGLIPTIN PHOSPHATE
  6. HYDROCODONE [Concomitant]
     Active Substance: HYDROCODONE
  7. KLOR?CON [Suspect]
     Active Substance: POTASSIUM CHLORIDE
     Indication: BLOOD POTASSIUM DECREASED
     Dosage: 8 MEQ, 2X/DAY
     Route: 048
  8. POTASSIUM CHLORIDE (PADDOCK) [Suspect]
     Active Substance: POTASSIUM CHLORIDE
     Indication: BLOOD POTASSIUM DECREASED
     Dosage: 8 MEQ, 2X/DAY
     Route: 048

REACTIONS (14)
  - Blood potassium increased [Recovered/Resolved]
  - Pancreatitis [Recovered/Resolved]
  - Feeding disorder [Recovered/Resolved]
  - Renal disorder [Recovered/Resolved]
  - Hallucination [Recovered/Resolved]
  - Pneumonia [Recovered/Resolved]
  - Insomnia [Recovered/Resolved]
  - Delusion [Recovered/Resolved]
  - Dependence on respirator [Recovered/Resolved]
  - Weight decreased [Unknown]
  - Kidney infection [Recovered/Resolved]
  - Dysuria [Recovered/Resolved]
  - Renal impairment [Recovered/Resolved]
  - Abdominal pain upper [Recovered/Resolved]

NARRATIVE: CASE EVENT DATE: 2016
